FAERS Safety Report 12798434 (Version 1)
Quarter: 2016Q3

REPORT INFORMATION
  Report Type: Spontaneous
  Country: FR (occurrence: FR)
  Receive Date: 20160930
  Receipt Date: 20160930
  Transmission Date: 20161109
  Serious: Yes (Life-Threatening, Other)
  Sender: FDA-Public Use
  Company Number: FR-009507513-1609FRA013538

PATIENT
  Age: 77 Year
  Sex: Female

DRUGS (5)
  1. TAREG [Concomitant]
     Active Substance: VALSARTAN
  2. TEMERIT [Concomitant]
     Active Substance: NEBIVOLOL
  3. KARDEGIC [Concomitant]
     Active Substance: ASPIRIN LYSINE
  4. LANTUS [Concomitant]
     Active Substance: INSULIN GLARGINE
     Dosage: UNK
     Dates: end: 20160903
  5. VELMETIA [Suspect]
     Active Substance: METFORMIN\SITAGLIPTIN
     Indication: DIABETES MELLITUS
     Dosage: UNK
     Route: 048
     Dates: end: 20160903

REACTIONS (3)
  - Lactic acidosis [Not Recovered/Not Resolved]
  - Ketoacidosis [Not Recovered/Not Resolved]
  - Acute kidney injury [Not Recovered/Not Resolved]

NARRATIVE: CASE EVENT DATE: 20160903
